FAERS Safety Report 4748456-9 (Version None)
Quarter: 2005Q3

REPORT INFORMATION
  Report Type: 
  Country: None (occurrence: None)
  Receive Date: 20050817
  Receipt Date: 20050511
  Transmission Date: 20060218
  Serious: Yes (Other)
  Sender: FDA-Public Use
  Company Number: PHEH2005US02958

PATIENT
  Age: 63 Year
  Sex: Female

DRUGS (8)
  1. GLEEVEC [Suspect]
     Indication: LEUKAEMIA
     Dosage: 100 MG, QD, ORAL
     Route: 048
     Dates: start: 20050101
  2. ZOCOR [Suspect]
     Dates: end: 20050101
  3. BENICAR [Concomitant]
  4. LEVOXYL [Concomitant]
  5. FUROSEMIDE [Concomitant]
  6. XANAX [Concomitant]
  7. CLONIDINE [Concomitant]
  8. TOPROL-XL [Concomitant]

REACTIONS (2)
  - BLOOD PRESSURE ABNORMAL [None]
  - HEPATIC ENZYME INCREASED [None]
